FAERS Safety Report 24695106 (Version 1)
Quarter: 2024Q4

REPORT INFORMATION
  Report Type: Spontaneous
  Country: US (occurrence: None)
  Receive Date: 20241204
  Receipt Date: 20241204
  Transmission Date: 20250114
  Serious: Yes (Hospitalization)
  Sender: Public
  Company Number: None

PATIENT
  Sex: Female

DRUGS (1)
  1. HUMIRA [Suspect]
     Active Substance: ADALIMUMAB
     Indication: Colitis
     Dosage: FREQ: INJECT 80 MG UNDER THE SKIN (SUBCUTANEOUS INJECTION) EVERY 14 DAYS AS DIRECTED
     Route: 058
     Dates: start: 20231111

REACTIONS (6)
  - Therapeutic response decreased [None]
  - Loss of personal independence in daily activities [None]
  - Pain [None]
  - Infection [None]
  - Colitis ulcerative [None]
  - Therapy interrupted [None]
